FAERS Safety Report 17755916 (Version 1)
Quarter: 2020Q2

REPORT INFORMATION
  Report Type: Spontaneous
  Country: US (occurrence: US)
  Receive Date: 20200507
  Receipt Date: 20200507
  Transmission Date: 20200714
  Serious: Yes (Other)
  Sender: FDA-Public Use
  Company Number: None

PATIENT
  Age: 37 Year
  Sex: Female
  Weight: 78.75 kg

DRUGS (3)
  1. ICY HOT MEDICATED NO MESS APPLICATOR [Suspect]
     Active Substance: MENTHOL
     Indication: BACK PAIN
     Dosage: ?          QUANTITY:1 TOPICAL;?
     Route: 061
     Dates: start: 20200101, end: 20200505
  2. IBUPROFEN. [Suspect]
     Active Substance: IBUPROFEN
  3. FLEXERIL [Concomitant]
     Active Substance: CYCLOBENZAPRINE HYDROCHLORIDE

REACTIONS (2)
  - Chemical burn [None]
  - Blister [None]

NARRATIVE: CASE EVENT DATE: 20200505
